FAERS Safety Report 20050652 (Version 1)
Quarter: 2021Q4

REPORT INFORMATION
  Report Type: Report from Study
  Country: US (occurrence: US)
  Receive Date: 20211109
  Receipt Date: 20211109
  Transmission Date: 20220303
  Serious: Yes (Hospitalization, Other)
  Sender: FDA-Public Use
  Company Number: US-ABBVIE-21K-163-4146294-00

PATIENT
  Sex: Male
  Weight: 79.450 kg

DRUGS (1)
  1. CREON [Suspect]
     Active Substance: PANCRELIPASE AMYLASE\PANCRELIPASE LIPASE\PANCRELIPASE PROTEASE
     Indication: Pancreatic failure
     Dosage: THREE CAPSULES PER MEAL AND TWO CAPSULES PER SNACK
     Route: 048
     Dates: start: 2020

REACTIONS (6)
  - Intestinal obstruction [Not Recovered/Not Resolved]
  - Obstruction gastric [Recovered/Resolved]
  - Stress [Unknown]
  - Rhinalgia [Unknown]
  - Gastric disorder [Recovered/Resolved]
  - Nasal discomfort [Recovered/Resolved]

NARRATIVE: CASE EVENT DATE: 20200101
